FAERS Safety Report 5279196-8 (Version None)
Quarter: 2007Q1

REPORT INFORMATION
  Report Type: 
  Country: None (occurrence: None)
  Receive Date: 20061213
  Receipt Date: 20060427
  Transmission Date: 20070707
  Serious: No
  Sender: FDA-Public Use
  Company Number: 2006UW07638

PATIENT
  Age: 63 Year
  Sex: Female
  Weight: 63502 kg

DRUGS (5)
  1. SEROQUEL [Suspect]
     Indication: HEAD INJURY
     Dosage: 200 MG; PO
     Route: 048
     Dates: start: 20051012, end: 20051101
  2. DILANTIN [Concomitant]
  3. ZETIA [Concomitant]
  4. LEVOTHYROXINE SODIUM [Concomitant]
  5. LESCOL [Concomitant]

REACTIONS (5)
  - AKINESIA [None]
  - ALOPECIA [None]
  - BLOOD GLUCOSE DECREASED [None]
  - BLOOD POTASSIUM INCREASED [None]
  - HYPOTENSION [None]
